FAERS Safety Report 6556973-4 (Version None)
Quarter: 2010Q1

REPORT INFORMATION
  Report Type: 
  Country: None (occurrence: None)
  Receive Date: 20100128
  Receipt Date: 20100123
  Transmission Date: 20100710
  Serious: Yes (Life-Threatening, Other)
  Sender: FDA-Public Use
  Company Number: DE-ABBOTT-09P-062-0580612-00

PATIENT
  Sex: Male

DRUGS (2)
  1. ERGENYL CHRONOSPHERE [Suspect]
     Indication: EPILEPSY
     Dosage: GRANULE
     Route: 048
     Dates: start: 20090301
  2. KEPPRA [Concomitant]
     Indication: DRUG USE FOR UNKNOWN INDICATION

REACTIONS (3)
  - EPILEPSY [None]
  - PRODUCT QUALITY ISSUE [None]
  - PRODUCT TASTE ABNORMAL [None]
